FAERS Safety Report 19947589 (Version 1)
Quarter: 2021Q4

REPORT INFORMATION
  Report Type: Spontaneous
  Country: ES (occurrence: ES)
  Receive Date: 20211012
  Receipt Date: 20211012
  Transmission Date: 20220303
  Serious: Yes (Other)
  Sender: FDA-Public Use
  Company Number: ES-CELLTRION HEALTHCARE HUNGARY KFT-2021ES008272

PATIENT

DRUGS (5)
  1. TACROLIMUS [Suspect]
     Active Substance: TACROLIMUS
     Indication: Adult T-cell lymphoma/leukaemia
     Dosage: FK (TACROLIMUS) X5 DAYS
  2. MYCOPHENOLATE MOFETIL [Suspect]
     Active Substance: MYCOPHENOLATE MOFETIL
     Indication: Adult T-cell lymphoma/leukaemia
     Dosage: MMF X3 WEEKS
  3. HUMAN IMMUNOGLOBULIN G [Suspect]
     Active Substance: HUMAN IMMUNOGLOBULIN G
     Indication: Adult T-cell lymphoma/leukaemia
     Dosage: IVIG X5 DAYS
  4. UNSPECIFIED INGREDIENT [Suspect]
     Active Substance: UNSPECIFIED INGREDIENT
     Indication: Adult T-cell lymphoma/leukaemia
     Dosage: TPE X4 SESSIONS
  5. RITUXIMAB [Suspect]
     Active Substance: RITUXIMAB
     Indication: Adult T-cell lymphoma/leukaemia
     Dosage: 375 MG/M2 WEEKLY (MEDIAN DOSES 3.5 DOSES, RANGE 1-6, ADMINISTERED WEEKLY STARTING FROM DAY -35) X3 D

REACTIONS (4)
  - Off label use [Unknown]
  - Cytomegalovirus infection reactivation [Recovering/Resolving]
  - Myelitis [Unknown]
  - Drug effective for unapproved indication [Unknown]
